FAERS Safety Report 13687310 (Version 3)
Quarter: 2017Q3

REPORT INFORMATION
  Report Type: Spontaneous
  Country: GB (occurrence: GB)
  Receive Date: 20170623
  Receipt Date: 20170830
  Transmission Date: 20171127
  Serious: Yes (Other)
  Sender: FDA-Public Use
  Company Number: GB-009507513-1706GBR008760

PATIENT
  Age: 17 Year
  Sex: Female
  Weight: 86 kg

DRUGS (1)
  1. NEXPLANON [Suspect]
     Active Substance: ETONOGESTREL
     Indication: CONTRACEPTION
     Dosage: 1 DF, EVERY 3 YEARS
     Route: 059
     Dates: start: 20170227, end: 20170505

REACTIONS (4)
  - Foreign body reaction [Recovered/Resolved with Sequelae]
  - Implant site inflammation [Recovered/Resolved with Sequelae]
  - Implant site scar [Not Recovered/Not Resolved]
  - Implant site erythema [Recovered/Resolved with Sequelae]

NARRATIVE: CASE EVENT DATE: 2017
